FAERS Safety Report 15143242 (Version 2)
Quarter: 2018Q3

REPORT INFORMATION
  Report Type: Spontaneous
  Country: US (occurrence: US)
  Receive Date: 20180713
  Receipt Date: 20180718
  Transmission Date: 20181010
  Serious: No
  Sender: FDA-Public Use
  Company Number: US-PFIZER INC-2018283990

PATIENT
  Age: 56 Year
  Sex: Male

DRUGS (1)
  1. METHOTREXATE SODIUM. [Suspect]
     Active Substance: METHOTREXATE SODIUM
     Dosage: UNK
     Dates: start: 2018, end: 2018

REACTIONS (2)
  - Blister [Unknown]
  - Drug intolerance [Unknown]

NARRATIVE: CASE EVENT DATE: 2018
